FAERS Safety Report 8321098-4 (Version None)
Quarter: 2012Q2

REPORT INFORMATION
  Report Type: 
  Country: None (occurrence: None)
  Receive Date: 20120430
  Receipt Date: 20120423
  Transmission Date: 20120825
  Serious: Yes (Other)
  Sender: FDA-Public Use
  Company Number: SE-JNJFOC-20120411700

PATIENT
  Age: 59 Year
  Sex: Male

DRUGS (3)
  1. NICORETTE PEPPARMINT 4MG GUM [Suspect]
     Indication: PRODUCT USED FOR UNKNOWN INDICATION
     Route: 048
     Dates: start: 20080101
  2. ASPIRIN [Concomitant]
     Indication: ANTICOAGULANT THERAPY
     Route: 048
  3. IMDUR [Concomitant]
     Indication: VASODILATATION
     Route: 048

REACTIONS (4)
  - DRUG INEFFECTIVE [None]
  - INCORRECT DRUG ADMINISTRATION DURATION [None]
  - DRUG DEPENDENCE [None]
  - OVERDOSE [None]
